FAERS Safety Report 8573713-8 (Version None)
Quarter: 2012Q3

REPORT INFORMATION
  Report Type: 
  Country: None (occurrence: None)
  Receive Date: 20120806
  Receipt Date: 20120731
  Transmission Date: 20120928
  Serious: Yes (Hospitalization)
  Sender: FDA-Public Use
  Company Number: US-GLAXOSMITHKLINE-A0987698A

PATIENT
  Age: 63 Year
  Sex: Female

DRUGS (15)
  1. OMEPRAZOLE [Concomitant]
  2. MUCINEX [Concomitant]
  3. OXYGEN [Concomitant]
  4. FLUTICASONE PROPIONATE [Suspect]
     Indication: CHRONIC OBSTRUCTIVE PULMONARY DISEASE
     Dosage: 1PUFF TWICE PER DAY
     Route: 055
  5. DILTIAZEM [Concomitant]
  6. BENAZEPRIL HYDROCHLORIDE [Concomitant]
  7. GLUCOTROL [Concomitant]
  8. FUROSEMIDE [Concomitant]
  9. ASPIRIN [Concomitant]
  10. CITRACAL [Concomitant]
  11. TRAMADOL HCL [Concomitant]
  12. SPIRIVA [Concomitant]
  13. NEXIUM [Concomitant]
  14. KLOR-CON [Concomitant]
  15. METOPROLOL TARTRATE [Concomitant]

REACTIONS (4)
  - OXYGEN SATURATION DECREASED [None]
  - ATRIAL FIBRILLATION [None]
  - DYSPNOEA [None]
  - CHRONIC OBSTRUCTIVE PULMONARY DISEASE [None]
